FAERS Safety Report 9918637 (Version 2)
Quarter: 2014Q1

REPORT INFORMATION
  Report Type: Report from Study
  Country: IN (occurrence: IN)
  Receive Date: 20140224
  Receipt Date: 20140228
  Transmission Date: 20141002
  Serious: Yes (Death)
  Sender: FDA-Public Use
  Company Number: IN-BRISTOL-MYERS SQUIBB COMPANY-20200887

PATIENT
  Age: 48 Year
  Sex: Female

DRUGS (1)
  1. SPRYCEL [Suspect]
     Indication: CHRONIC MYELOID LEUKAEMIA
     Route: 048
     Dates: start: 20111231, end: 20130217

REACTIONS (3)
  - Cerebral haemorrhage [Fatal]
  - Malignant neoplasm progression [Fatal]
  - Head injury [Fatal]
